FAERS Safety Report 18177306 (Version 1)
Quarter: 2020Q3

REPORT INFORMATION
  Report Type: Spontaneous
  Country: DE (occurrence: DE)
  Receive Date: 20200821
  Receipt Date: 20200821
  Transmission Date: 20201103
  Serious: Yes (Hospitalization)
  Sender: FDA-Public Use
  Company Number: DE-TEVA-2020-DE-1815589

PATIENT
  Age: 82 Year
  Sex: Male

DRUGS (13)
  1. MIRTAZAPIN [Suspect]
     Active Substance: MIRTAZAPINE
     Dosage: 15 MILLIGRAM DAILY;  0?0?1?0,
     Route: 048
  2. ACETYLSALICYLSAURE [Concomitant]
     Active Substance: ASPIRIN
     Dosage: 100 MILLIGRAM DAILY;  1?0?0?0,
     Route: 048
  3. CYANOCOBALAMIN (VITAMIN B12) [Concomitant]
     Dosage: 1 MILLIGRAM DAILY;  1?0?0?0,
     Route: 048
  4. AMLODIPIN/CANDESARTAN [Concomitant]
     Active Substance: AMLODIPINE\CANDESARTAN CILEXETIL
     Dosage: 2 DOSAGE FORMS DAILY; 5|16 MG, 1?0?1?0,
     Route: 048
  5. RISPERIDON [Suspect]
     Active Substance: RISPERIDONE
     Dosage: 1.5 MILLIGRAM DAILY; 1?1?1?0,
     Route: 048
  6. DONEPEZIL. [Concomitant]
     Active Substance: DONEPEZIL
     Dosage: 10 MILLIGRAM DAILY; 1?0?0?0,
     Route: 048
  7. SIMVASTATIN. [Concomitant]
     Active Substance: SIMVASTATIN
     Dosage: 20 MILLIGRAM DAILY; 0?0?1?0,
     Route: 048
  8. PANTOPRAZOL [Concomitant]
     Active Substance: PANTOPRAZOLE SODIUM
     Dosage: 40 MILLIGRAM DAILY; 1?0?0?0,
     Route: 048
  9. METOPROLOL. [Concomitant]
     Active Substance: METOPROLOL
     Dosage: .5 DOSAGE FORMS DAILY; 47.5 MG, 0?0?0.5?0,
     Route: 048
  10. PREGABALIN. [Suspect]
     Active Substance: PREGABALIN
     Dosage: 150 MILLIGRAM DAILY;  1?0?1?0,
     Route: 048
  11. TAMSULOSIN [Concomitant]
     Active Substance: TAMSULOSIN
     Dosage: .4 MILLIGRAM DAILY;  1?0?0?0
     Route: 048
  12. DONEPEZIL. [Suspect]
     Active Substance: DONEPEZIL
     Dosage: 10 MILLIGRAM DAILY; 1?0?0?0,
     Route: 048
  13. METAMIZOL [Concomitant]
     Active Substance: METAMIZOLE SODIUM
     Dosage: 500 MG / ML, 30?30?30?30, DROPS
     Route: 048

REACTIONS (4)
  - Fall [Recovering/Resolving]
  - Depressed level of consciousness [Recovering/Resolving]
  - Gait disturbance [Recovering/Resolving]
  - General physical health deterioration [Recovering/Resolving]
